FAERS Safety Report 17786140 (Version 2)
Quarter: 2020Q2

REPORT INFORMATION
  Report Type: Spontaneous
  Country: GB (occurrence: GB)
  Receive Date: 20200513
  Receipt Date: 20200521
  Transmission Date: 20200714
  Serious: Yes (Other)
  Sender: FDA-Public Use
  Company Number: GB-AUROBINDO-AUR-APL-2020-024322

PATIENT
  Age: 8 Year
  Sex: Female

DRUGS (2)
  1. LEVETIRACETAM MILPHARM ORAL SOLUTION [Suspect]
     Active Substance: LEVETIRACETAM
     Indication: EPILEPSY
     Dosage: 9 MILLILITER, ONCE A DAY
     Route: 048
     Dates: start: 20140101
  2. CLOBAZAM. [Suspect]
     Active Substance: CLOBAZAM
     Indication: EPILEPSY
     Dosage: 12.5 MILLIGRAM, DAILY (5MG MORNING, 7.5MG EVENING)
     Route: 048
     Dates: start: 20140101

REACTIONS (11)
  - Neuralgia [Not Recovered/Not Resolved]
  - Memory impairment [Not Recovered/Not Resolved]
  - Agitation [Not Recovered/Not Resolved]
  - Crying [Unknown]
  - Myalgia [Unknown]
  - Fatigue [Not Recovered/Not Resolved]
  - Weight increased [Not Recovered/Not Resolved]
  - Depression [Not Recovered/Not Resolved]
  - Affect lability [Not Recovered/Not Resolved]
  - Fibromyalgia [Not Recovered/Not Resolved]
  - Somnolence [Not Recovered/Not Resolved]

NARRATIVE: CASE EVENT DATE: 20140101
